FAERS Safety Report 18817676 (Version 2)
Quarter: 2021Q1

REPORT INFORMATION
  Report Type: Report from Study
  Country: BR (occurrence: BR)
  Receive Date: 20210201
  Receipt Date: 20210202
  Transmission Date: 20210419
  Serious: Yes (Hospitalization)
  Sender: FDA-Public Use
  Company Number: NVSC2021BR016185

PATIENT
  Age: 54 Year
  Sex: Female

DRUGS (5)
  1. ZOMETA [Concomitant]
     Active Substance: ZOLEDRONIC ACID
     Indication: METASTASES TO BONE
     Dosage: EVERY 56 DAYS
     Route: 065
     Dates: start: 2016
  2. FASLODEX [Concomitant]
     Active Substance: FULVESTRANT
     Indication: PRODUCT USED FOR UNKNOWN INDICATION
     Dosage: UNK
     Route: 065
     Dates: start: 202005
  3. FULVESTRANT. [Suspect]
     Active Substance: FULVESTRANT
     Indication: PRODUCT USED FOR UNKNOWN INDICATION
     Dosage: EVERY 28 DAYS
     Route: 065
     Dates: start: 2016
  4. ALPELISIB [Concomitant]
     Active Substance: ALPELISIB
     Indication: BREAST CANCER
     Dosage: 300 MG (200MG + 50 MG + 50MG)
     Route: 065
     Dates: start: 20201224, end: 20210111
  5. ALPELISIB [Concomitant]
     Active Substance: ALPELISIB
     Dosage: 250MG (200MG + 50 MG)
     Route: 065
     Dates: start: 20210111

REACTIONS (2)
  - Hyperglycaemia [Recovering/Resolving]
  - Illness [Unknown]

NARRATIVE: CASE EVENT DATE: 20201231
